FAERS Safety Report 8073442-3 (Version None)
Quarter: 2011Q4

REPORT INFORMATION
  Report Type: 
  Country: None (occurrence: None)
  Receive Date: 20111221
  Receipt Date: 20110801
  Transmission Date: 20120403
  Serious: Yes (Death)
  Sender: FDA-Public Use
  Company Number: PHHY2011US26044

PATIENT
  Age: 67 Year
  Sex: Female
  Weight: 51.8 kg

DRUGS (3)
  1. VIDAZA [Concomitant]
     Indication: HAEMATOPOIETIC NEOPLASM
  2. EXJADE [Suspect]
     Indication: LYMPHATIC SYSTEM NEOPLASM
     Dosage: 1500 MG, ORAL
     Route: 048
     Dates: start: 20100628
  3. EXJADE [Suspect]
     Indication: SERUM FERRITIN INCREASED
     Dosage: 1500 MG, ORAL
     Route: 048
     Dates: start: 20100628

REACTIONS (4)
  - SPLEEN DISORDER [None]
  - SERUM FERRITIN INCREASED [None]
  - MYELODYSPLASTIC SYNDROME TRANSFORMATION [None]
  - LIVER DISORDER [None]
